FAERS Safety Report 12782535 (Version 1)
Quarter: 2016Q3

REPORT INFORMATION
  Report Type: Spontaneous
  Country: None (occurrence: IN)
  Receive Date: 20160927
  Receipt Date: 20160927
  Transmission Date: 20161109
  Serious: Yes (Hospitalization, Other)
  Sender: FDA-Public Use
  Company Number: IN-STRIDES ARCOLAB LIMITED-2016SP013859

PATIENT

DRUGS (5)
  1. LOSARTAN. [Concomitant]
     Active Substance: LOSARTAN
     Indication: HYPERTENSION
     Dosage: 50 MG, DAILY
  2. CARISOPRODOL. [Suspect]
     Active Substance: CARISOPRODOL
     Indication: ARTHRALGIA
     Dosage: UNK
  3. CARISOPRODOL. [Suspect]
     Active Substance: CARISOPRODOL
     Dosage: DOUBLE THE INDICATED DOSE (6-7 TABLETS; 2100 MG) DAILY
  4. METFORMIN [Concomitant]
     Active Substance: METFORMIN HYDROCHLORIDE
     Indication: DIABETES MELLITUS
     Dosage: 1 G, DAILY
  5. ELTROXIN [Concomitant]
     Active Substance: LEVOTHYROXINE
     Indication: HYPOTHYROIDISM
     Dosage: 0.75 MG, DAILY

REACTIONS (19)
  - Overdose [Recovered/Resolved]
  - Insomnia [Recovered/Resolved]
  - Autonomic nervous system imbalance [Recovered/Resolved]
  - Tachycardia [Recovered/Resolved]
  - Cold sweat [Recovered/Resolved]
  - Depressed level of consciousness [Recovered/Resolved]
  - Speech disorder [Recovered/Resolved]
  - Drug dependence [Recovered/Resolved]
  - Restlessness [Recovered/Resolved]
  - Delirium [Recovered/Resolved]
  - Tachypnoea [Recovered/Resolved]
  - Hallucination, visual [Recovered/Resolved]
  - Drug withdrawal syndrome [Unknown]
  - Drug abuse [Recovered/Resolved]
  - Muscle rigidity [Recovered/Resolved]
  - Neuroleptic malignant syndrome [Recovered/Resolved]
  - Pyrexia [Recovered/Resolved]
  - Myoclonus [Recovered/Resolved]
  - Metabolic acidosis [Recovered/Resolved]
